FAERS Safety Report 14896482 (Version 1)
Quarter: 2018Q2

REPORT INFORMATION
  Report Type: Spontaneous
  Country: FR (occurrence: FR)
  Receive Date: 20180515
  Receipt Date: 20180515
  Transmission Date: 20180711
  Serious: Yes (Hospitalization)
  Sender: FDA-Public Use
  Company Number: FR-CELGENEUS-FRA-20180500972

PATIENT
  Age: 72 Year
  Sex: Female
  Weight: 55 kg

DRUGS (1)
  1. REVLIMID [Suspect]
     Active Substance: LENALIDOMIDE
     Indication: MYELODYSPLASTIC SYNDROME
     Dosage: 3.75 MILLIGRAM
     Route: 048
     Dates: start: 201707, end: 201804

REACTIONS (1)
  - Anaplastic astrocytoma [Not Recovered/Not Resolved]

NARRATIVE: CASE EVENT DATE: 201804
